FAERS Safety Report 7014086-1 (Version None)
Quarter: 2010Q3

REPORT INFORMATION
  Report Type: 
  Country: None (occurrence: None)
  Receive Date: 20100927
  Receipt Date: 20100916
  Transmission Date: 20110219
  Serious: Yes (Other)
  Sender: FDA-Public Use
  Company Number: US-BIOGENIDEC-2010BI025925

PATIENT
  Age: 50 Year
  Sex: Female

DRUGS (1)
  1. TYSABRI [Suspect]
     Indication: MULTIPLE SCLEROSIS
     Route: 042
     Dates: start: 20100205

REACTIONS (4)
  - ANAEMIA [None]
  - BRONCHITIS [None]
  - LOWER RESPIRATORY TRACT INFECTION FUNGAL [None]
  - UTERINE LEIOMYOMA [None]
